FAERS Safety Report 6776444-X (Version None)
Quarter: 2010Q2

REPORT INFORMATION
  Report Type: 
  Country: None (occurrence: None)
  Receive Date: 20100615
  Receipt Date: 20100608
  Transmission Date: 20101027
  Serious: Yes (Death, Hospitalization)
  Sender: FDA-Public Use
  Company Number: 2010JP001654

PATIENT
  Age: 63 Year
  Sex: Male
  Weight: 72 kg

DRUGS (14)
  1. TACROLIMUS [Suspect]
     Indication: INTERSTITIAL LUNG DISEASE
     Dosage: 4 MG, ORAL; 2 MG, ORAL; 3 MG, ORAL; 2 MG, ORAL; 1 MG, ORAL; 1MG, ORAL
     Route: 048
     Dates: start: 20090721, end: 20091123
  2. TACROLIMUS [Suspect]
     Indication: INTERSTITIAL LUNG DISEASE
     Dosage: 4 MG, ORAL; 2 MG, ORAL; 3 MG, ORAL; 2 MG, ORAL; 1 MG, ORAL; 1MG, ORAL
     Route: 048
     Dates: start: 20091124, end: 20091221
  3. TACROLIMUS [Suspect]
     Indication: INTERSTITIAL LUNG DISEASE
     Dosage: 4 MG, ORAL; 2 MG, ORAL; 3 MG, ORAL; 2 MG, ORAL; 1 MG, ORAL; 1MG, ORAL
     Route: 048
     Dates: start: 20081219
  4. PROGRAF [Suspect]
     Indication: DERMATOMYOSITIS
     Dosage: 0.5 MG BID, ORAL
     Route: 048
     Dates: start: 20100220, end: 20100303
  5. PROGRAF [Suspect]
     Indication: DERMATOMYOSITIS
     Dosage: 0.5 MG BID, ORAL
     Route: 048
     Dates: start: 20091222
  6. PREDNISOLONE [Suspect]
     Indication: INTERSTITIAL LUNG DISEASE
     Dosage: 7 MG, BID, IV DRIP
     Route: 041
     Dates: start: 20100220, end: 20100312
  7. PREDNISOLONE [Concomitant]
  8. PREDNISOLONE [Concomitant]
  9. RABEPRAZOLE SODIUM [Concomitant]
  10. MAGLAX (MAGNESIUM OXIDE) [Concomitant]
  11. ALOSENN (ACHILLEA MILLEFOLIUM, RUBIA TINCTORUM ROOT INNCTTURE, SENNA A [Concomitant]
  12. PRAVASTATIN [Concomitant]
  13. NATEGLINIDE [Concomitant]
  14. BONALON (ALENDRONIC ACID) [Concomitant]

REACTIONS (7)
  - BRONCHOPNEUMONIA [None]
  - CHILLS [None]
  - DRUG INEFFECTIVE [None]
  - INTERSTITIAL LUNG DISEASE [None]
  - MALAISE [None]
  - PYREXIA [None]
  - RESPIRATORY FAILURE [None]
